FAERS Safety Report 9879324 (Version 2)
Quarter: 2014Q1

REPORT INFORMATION
  Report Type: Spontaneous
  Country: US (occurrence: US)
  Receive Date: 20140206
  Receipt Date: 20140206
  Transmission Date: 20141002
  Serious: Yes (Hospitalization)
  Sender: FDA-Public Use
  Company Number: US-TEVA-391055USA

PATIENT
  Sex: 0

DRUGS (2)
  1. PROPOFOL [Suspect]
     Route: 041
  2. INSULIN [Suspect]
     Route: 041

REACTIONS (1)
  - Blood glucose increased [Unknown]
